FAERS Safety Report 6110951-8 (Version None)
Quarter: 2009Q1

REPORT INFORMATION
  Report Type: 
  Country: None (occurrence: None)
  Receive Date: 20090311
  Receipt Date: 20090309
  Transmission Date: 20090719
  Serious: Yes (Hospitalization)
  Sender: FDA-Public Use
  Company Number: ES-BRISTOL-MYERS SQUIBB COMPANY-14537039

PATIENT
  Age: 79 Year
  Sex: Male

DRUGS (3)
  1. MAXIPIME [Suspect]
     Indication: BRONCHIECTASIS
     Dosage: 1 GRAM POWDER IV SOLUTION - 1 VIAL+ 1 AMPULE
     Route: 042
     Dates: start: 20070904, end: 20070914
  2. TAVANIC [Suspect]
     Indication: BRONCHIECTASIS
     Dosage: 500 MG COATED TABLETS-10 TABLETS
     Dates: start: 20070903, end: 20070914
  3. VFEND [Suspect]
     Indication: BRONCHOPULMONARY ASPERGILLOSIS
     Dosage: 28 COATED TABLETS
     Route: 048
     Dates: start: 20070912, end: 20070928

REACTIONS (1)
  - TRANSAMINASES INCREASED [None]
